FAERS Safety Report 10070219 (Version 1)
Quarter: 2014Q2

REPORT INFORMATION
  Report Type: Spontaneous
  Country: US (occurrence: None)
  Receive Date: 20140408
  Receipt Date: 20140408
  Transmission Date: 20141212
  Serious: Yes (Other)
  Sender: FDA-Public Use
  Company Number: 20140166

PATIENT
  Age: 48 Year
  Sex: Female

DRUGS (1)
  1. BUPRENORPHINE HYDROCHLORIDE [Suspect]
     Indication: PRODUCT USED FOR UNKNOWN INDICATION
     Dosage: 0.3 MG EVERY 8 HOURS
     Route: 030

REACTIONS (3)
  - Tremor [None]
  - Hepatotoxicity [None]
  - Hepatitis acute [None]
